FAERS Safety Report 11040829 (Version 2)
Quarter: 2015Q2

REPORT INFORMATION
  Report Type: Spontaneous
  Country: US (occurrence: US)
  Receive Date: 20150416
  Receipt Date: 20150525
  Transmission Date: 20150821
  Serious: Yes (Other)
  Sender: FDA-Public Use
  Company Number: US-JNJFOC-20130506380

PATIENT
  Age: 79 Year
  Sex: Female

DRUGS (6)
  1. JANUVIA [Concomitant]
     Active Substance: SITAGLIPTIN PHOSPHATE
     Dosage: EVERY OTHER DAY
     Route: 065
     Dates: start: 200703
  2. XARELTO [Suspect]
     Active Substance: RIVAROXABAN
     Indication: PRODUCT USED FOR UNKNOWN INDICATION
     Route: 048
     Dates: start: 20130503
  3. LASIX [Concomitant]
     Active Substance: FUROSEMIDE
     Dosage: EVERY OTHER DAY
     Route: 065
     Dates: start: 20130416
  4. DIOVAN [Concomitant]
     Active Substance: VALSARTAN
     Dosage: 80/12.5 ONCE DAILY
     Route: 065
  5. LOPRESSOR [Concomitant]
     Active Substance: METOPROLOL TARTRATE
     Indication: ATRIAL FIBRILLATION
     Dosage: 80/12.5 ONCE DAILY
     Route: 065
     Dates: start: 20130416
  6. XARELTO [Suspect]
     Active Substance: RIVAROXABAN
     Indication: PRODUCT USED FOR UNKNOWN INDICATION
     Route: 048

REACTIONS (1)
  - Blood urine present [Recovered/Resolved]

NARRATIVE: CASE EVENT DATE: 20130503
